FAERS Safety Report 7072233-X (Version None)
Quarter: 2010Q4

REPORT INFORMATION
  Report Type: 
  Country: None (occurrence: None)
  Receive Date: 20101029
  Receipt Date: 20091224
  Transmission Date: 20110411
  Serious: No
  Sender: FDA-Public Use
  Company Number: A0836727A

PATIENT
  Age: 77 Year
  Sex: Male

DRUGS (3)
  1. ADVAIR DISKUS 100/50 [Suspect]
     Indication: EMPHYSEMA
     Route: 055
  2. ALBUTEROL [Concomitant]
  3. SPIRIVA [Concomitant]

REACTIONS (1)
  - DRY MOUTH [None]
